FAERS Safety Report 24788735 (Version 3)
Quarter: 2025Q2

REPORT INFORMATION
  Report Type: Spontaneous
  Country: US (occurrence: US)
  Receive Date: 20241230
  Receipt Date: 20250506
  Transmission Date: 20250717
  Serious: Yes (Life-Threatening, Other)
  Sender: PFIZER
  Company Number: US-PFIZER INC-202400329744

PATIENT
  Age: 41 Year
  Sex: Male
  Weight: 101.33 kg

DRUGS (7)
  1. BUPIVACAINE HYDROCHLORIDE [Suspect]
     Active Substance: BUPIVACAINE HYDROCHLORIDE
  2. DEPO-MEDROL [Suspect]
     Active Substance: METHYLPREDNISOLONE ACETATE
  3. LIDOCAINE HYDROCHLORIDE [Suspect]
     Active Substance: LIDOCAINE HYDROCHLORIDE
  4. ACETAMINOPHEN\HYDROCODONE [Suspect]
     Active Substance: ACETAMINOPHEN\HYDROCODONE
  5. TRAZODONE [Suspect]
     Active Substance: TRAZODONE HYDROCHLORIDE
  6. BUSPIRONE [Suspect]
     Active Substance: BUSPIRONE HYDROCHLORIDE
  7. GABAPENTIN [Suspect]
     Active Substance: GABAPENTIN

REACTIONS (46)
  - Serotonin syndrome [Unknown]
  - Craniocerebral injury [Unknown]
  - Cerebrovascular accident [Unknown]
  - Cushing^s syndrome [Unknown]
  - Type 2 diabetes mellitus [Unknown]
  - Cachexia [Unknown]
  - Dysphonia [Unknown]
  - Drug hypersensitivity [Unknown]
  - Cognitive disorder [Unknown]
  - Vertigo [Unknown]
  - Glucose tolerance impaired [Not Recovered/Not Resolved]
  - Blood glucose increased [Unknown]
  - Affective disorder [Unknown]
  - Behaviour disorder [Unknown]
  - Visual impairment [Unknown]
  - Blood pressure increased [Unknown]
  - Blood creatine phosphokinase abnormal [Unknown]
  - Hepatic steatosis [Unknown]
  - Blood urine [Unknown]
  - Chills [Recovered/Resolved]
  - Post concussion syndrome [Unknown]
  - Dyspnoea [Unknown]
  - Gastrointestinal disorder [Unknown]
  - Blood disorder [Unknown]
  - Cardiovascular disorder [Unknown]
  - Hunger [Not Recovered/Not Resolved]
  - Thirst [Not Recovered/Not Resolved]
  - Pollakiuria [Not Recovered/Not Resolved]
  - Arthralgia [Unknown]
  - Joint stiffness [Unknown]
  - Joint swelling [Unknown]
  - Faeces pale [Unknown]
  - Decreased appetite [Unknown]
  - Libido decreased [Unknown]
  - Sexual dysfunction [Unknown]
  - Back pain [Unknown]
  - Musculoskeletal chest pain [Unknown]
  - Pain in extremity [Unknown]
  - Myalgia [Unknown]
  - Tenderness [Unknown]
  - Asthenia [Unknown]
  - Nausea [Unknown]
  - Dysuria [Unknown]
  - Oropharyngeal pain [Unknown]
  - Abdominal pain upper [Unknown]
  - Dyspepsia [Unknown]

NARRATIVE: CASE EVENT DATE: 20190219
